FAERS Safety Report 7077830-3 (Version None)
Quarter: 2010Q4

REPORT INFORMATION
  Report Type: 
  Country: None (occurrence: None)
  Receive Date: 20101101
  Receipt Date: 20101027
  Transmission Date: 20110411
  Serious: Yes (Hospitalization)
  Sender: FDA-Public Use
  Company Number: US-CEPHALON-2010003568

PATIENT
  Sex: Female
  Weight: 67 kg

DRUGS (27)
  1. TREANDA [Suspect]
     Indication: MULTIPLE MYELOMA
     Route: 042
     Dates: start: 20100511, end: 20100611
  2. VELCADE [Suspect]
     Indication: MULTIPLE MYELOMA
     Route: 040
     Dates: start: 20100511, end: 20100611
  3. SIMVASTATIN [Concomitant]
     Indication: HYPERCHOLESTEROLAEMIA
     Dates: start: 20060301
  4. GABAPENTIN [Concomitant]
     Indication: POST HERPETIC NEURALGIA
     Dates: start: 20031201
  5. AMBIEN [Concomitant]
     Indication: INSOMNIA
     Dates: start: 20071113
  6. ACYCLOVIR SODIUM [Concomitant]
     Indication: PROPHYLAXIS
     Dates: start: 20080801
  7. NEXIUM [Concomitant]
     Indication: GASTROOESOPHAGEAL REFLUX DISEASE
     Dates: start: 20040106
  8. ASPIRIN [Concomitant]
     Indication: PROPHYLAXIS
     Dates: start: 20030101
  9. AMITIZA [Concomitant]
     Indication: CONSTIPATION
     Dates: start: 20081226
  10. ALPHA LIPOIC ACID [Concomitant]
     Indication: PROPHYLAXIS
     Dates: start: 20061110
  11. MIRALAX [Concomitant]
     Indication: CONSTIPATION
  12. GAVISCON [Concomitant]
     Indication: GASTROOESOPHAGEAL REFLUX DISEASE
  13. CIPRO [Concomitant]
     Dates: start: 20100507
  14. DILAUDID [Concomitant]
     Indication: PAIN MANAGEMENT
     Dosage: 4-8MG
     Dates: start: 20100101
  15. ESCITALOPRAM OXALATE [Concomitant]
     Indication: DEPRESSION
     Dates: start: 20100421
  16. ATIVAN [Concomitant]
     Dosage: 1-4MG
     Dates: start: 20100324
  17. MULTI-VITAMINS/MINERALS/SUPPLEMENTS [Concomitant]
  18. FENTANYL CITRATE [Concomitant]
     Indication: PAIN MANAGEMENT
     Dosage: 50-62-5MCG/HR
     Dates: start: 20100419
  19. ZOMETA [Concomitant]
     Indication: MULTIPLE MYELOMA
  20. PROCRIT [Concomitant]
     Indication: ANAEMIA
     Route: 058
     Dates: start: 20070130
  21. ALOXI [Concomitant]
     Indication: PROPHYLAXIS
     Dates: start: 20100511
  22. NAPROXEN SODIUM [Concomitant]
     Indication: PAIN MANAGEMENT
     Dates: start: 20030401
  23. MACRODANTIN [Concomitant]
     Indication: URINARY TRACT INFECTION
     Dates: start: 20100405, end: 20100421
  24. COMPAZINE [Concomitant]
     Indication: NAUSEA
     Dates: start: 20100315, end: 20100427
  25. LISINOPRIL [Concomitant]
     Indication: HYPERTENSION
     Dates: start: 20080101
  26. LASIX [Concomitant]
     Dates: start: 20100625
  27. LEVAQUIN [Concomitant]

REACTIONS (1)
  - CYSTITIS [None]
